FAERS Safety Report 13826925 (Version 1)
Quarter: 2017Q3

REPORT INFORMATION
  Report Type: Spontaneous
  Country: US (occurrence: US)
  Receive Date: 20170802
  Receipt Date: 20170802
  Transmission Date: 20171127
  Serious: Yes (Hospitalization)
  Sender: FDA-Public Use
  Company Number: US-ROCHE-626972

PATIENT
  Age: 62 Year
  Sex: Female
  Weight: 72.6 kg

DRUGS (2)
  1. LISINOPRIL. [Concomitant]
     Active Substance: LISINOPRIL
     Indication: HYPERTENSION
     Route: 048
  2. BONIVA [Suspect]
     Active Substance: IBANDRONATE SODIUM
     Indication: OSTEOPENIA
     Route: 048
     Dates: start: 200903, end: 20090416

REACTIONS (7)
  - Asthenia [Unknown]
  - Constipation [Unknown]
  - Nausea [Unknown]
  - Neck pain [Unknown]
  - Chest pain [Recovering/Resolving]
  - Eructation [Unknown]
  - Sinus pain [Unknown]

NARRATIVE: CASE EVENT DATE: 20090406
